FAERS Safety Report 7611442-5 (Version None)
Quarter: 2011Q3

REPORT INFORMATION
  Report Type: 
  Country: None (occurrence: None)
  Receive Date: 20110715
  Receipt Date: 20110701
  Transmission Date: 20111222
  Serious: Yes (Hospitalization)
  Sender: FDA-Public Use
  Company Number: US-ELI_LILLY_AND_COMPANY-US201007004806

PATIENT
  Sex: Female
  Weight: 47.075 kg

DRUGS (27)
  1. PREDNISONE [Concomitant]
     Dosage: 5 MG, QD
  2. CALCIUM CARBONATE [Concomitant]
     Dosage: 500 MG, BID
  3. ADVAIR DISKUS 100/50 [Concomitant]
     Dosage: 1 DF, BID
  4. FORTEO [Suspect]
     Dosage: 20 UG, QD
     Route: 058
  5. DILTIAZEM [Concomitant]
     Indication: BLOOD PRESSURE ABNORMAL
  6. ZOCOR [Concomitant]
     Dosage: 20 UNK, UNK
     Route: 048
  7. OMEPRAZOLE [Concomitant]
     Dosage: 40 MG, UNK
     Route: 048
  8. CALCIUM CARBONATE [Concomitant]
     Dosage: UNK
  9. ZITHROMAX [Concomitant]
     Dosage: 250 MG, QD
  10. ADVAIR DISKUS 100/50 [Concomitant]
     Dosage: 500 DF, BID
     Route: 055
  11. OXYGEN [Concomitant]
     Dosage: 2 L, QD
  12. GLUCOSAMINE CHONDROITIN [Concomitant]
     Dosage: 2 DF, UNK
     Route: 048
  13. SIMVASTATIN [Concomitant]
  14. ALBUTEROL SULFATE AND IPRATROPIUM BROMIDE [Concomitant]
     Dosage: UNK UNK, QID
  15. MELATONIN [Concomitant]
     Dosage: 5 MG, UNK
     Route: 048
  16. MULTI-VITAMIN [Concomitant]
     Dosage: 1 DF, UNK
     Route: 048
  17. VENTOLIN HFA [Concomitant]
     Dosage: 90 UG, OTHER
  18. DILTIA XT [Concomitant]
     Dosage: 240 MG, UNK
     Route: 048
  19. ALBUTEROL [Concomitant]
     Dosage: UNK, OTHER
  20. CALCIUM CARBONATE [Concomitant]
     Dosage: 600 MG, EACH MORNING
     Route: 048
  21. VITAMIN E [Concomitant]
     Dosage: 1 UNK, UNK
     Route: 048
  22. TYLENOL (CAPLET) [Concomitant]
     Dosage: 1300 MG, QD
  23. FORTEO [Suspect]
     Indication: OSTEOPOROSIS
     Dosage: 20 UG, QD
     Route: 058
     Dates: start: 20100706
  24. FORTEO [Suspect]
     Dosage: 20 UG, QD
     Route: 058
     Dates: start: 20110618
  25. PRILOSEC [Concomitant]
     Dosage: UNK, BID
  26. TYLENOL                                 /SCH/ [Concomitant]
     Dosage: 1 DF, BID
  27. VIACTIV                                 /USA/ [Concomitant]
     Dosage: 1 DF, QD
     Route: 048

REACTIONS (11)
  - PYREXIA [None]
  - SPINAL COLUMN STENOSIS [None]
  - DIZZINESS [None]
  - PAIN IN EXTREMITY [None]
  - COUGH [None]
  - ARTHRALGIA [None]
  - CONSTIPATION [None]
  - SPINAL OSTEOARTHRITIS [None]
  - RADICULOPATHY [None]
  - INJECTION SITE HAEMATOMA [None]
  - BLOOD CALCIUM INCREASED [None]
